FAERS Safety Report 5840759-X (Version None)
Quarter: 2008Q3

REPORT INFORMATION
  Report Type: 
  Country: None (occurrence: None)
  Receive Date: 20080811
  Receipt Date: 20080730
  Transmission Date: 20090109
  Serious: Yes (Other)
  Sender: FDA-Public Use
  Company Number: US-PFIZER INC-2008051965

PATIENT
  Sex: Female
  Weight: 65.8 kg

DRUGS (13)
  1. CHANTIX [Suspect]
     Indication: SMOKING CESSATION THERAPY
     Route: 048
     Dates: start: 20080610, end: 20080701
  2. PROMETHAZINE [Suspect]
     Indication: NAUSEA
     Route: 048
  3. SOTALOL HCL [Concomitant]
  4. PRIMIDONE [Concomitant]
  5. LEVOTHROID [Concomitant]
  6. ZOCOR [Concomitant]
  7. WARFARIN SODIUM [Concomitant]
  8. CALMAG D [Concomitant]
  9. GLUCOSAMINE [Concomitant]
  10. LORAZEPAM [Concomitant]
  11. FLORINEF [Concomitant]
  12. VICODIN [Concomitant]
  13. OXYCONTIN [Concomitant]

REACTIONS (8)
  - BREATH ODOUR [None]
  - DEPRESSION [None]
  - DYSGEUSIA [None]
  - EYE PAIN [None]
  - FATIGUE [None]
  - LIGAMENT INJURY [None]
  - NAUSEA [None]
  - PAIN [None]
